FAERS Safety Report 13775567 (Version 1)
Quarter: 2017Q3

REPORT INFORMATION
  Report Type: Spontaneous
  Country: US (occurrence: US)
  Receive Date: 20170720
  Receipt Date: 20170720
  Transmission Date: 20171127
  Serious: No
  Sender: FDA-Public Use
  Company Number: GXBR2016US001963

PATIENT
  Sex: Female

DRUGS (2)
  1. ZINC OXIDE. [Suspect]
     Active Substance: ZINC OXIDE
     Indication: DECUBITUS ULCER
     Dosage: UNK DF, UNK
     Route: 061
  2. ZINC OXIDE. [Suspect]
     Active Substance: ZINC OXIDE
     Indication: DRY SKIN

REACTIONS (1)
  - Drug ineffective [Unknown]
